FAERS Safety Report 8233409-9 (Version None)
Quarter: 2012Q1

REPORT INFORMATION
  Report Type: 
  Country: None (occurrence: None)
  Receive Date: 20120326
  Receipt Date: 20120313
  Transmission Date: 20120608
  Serious: Yes (Life-Threatening)
  Sender: FDA-Public Use
  Company Number: GB-TEVA-329553ISR

PATIENT
  Age: 22 Year
  Sex: Female
  Weight: 46 kg

DRUGS (2)
  1. ZONISAMIDE [Suspect]
     Indication: EPILEPSY
     Dosage: 400MG OD
     Route: 048
     Dates: start: 20110505
  2. AMITRIPTYLINE HCL [Suspect]
     Dosage: NOT A REGULAR MEDICATION OF THIS PATIENT
     Route: 048

REACTIONS (7)
  - DEPRESSED LEVEL OF CONSCIOUSNESS [None]
  - METABOLIC DISORDER [None]
  - STATUS EPILEPTICUS [None]
  - AGITATION [None]
  - HYPOKALAEMIA [None]
  - POLYURIA [None]
  - METABOLIC ACIDOSIS [None]
